FAERS Safety Report 11702737 (Version 1)
Quarter: 2015Q4

REPORT INFORMATION
  Report Type: Spontaneous
  Country: US (occurrence: US)
  Receive Date: 20151105
  Receipt Date: 20151105
  Transmission Date: 20160304
  Serious: No
  Sender: FDA-Public Use
  Company Number: US-PFIZER INC-2015374096

PATIENT
  Sex: Male

DRUGS (2)
  1. RAPAMUNE [Suspect]
     Active Substance: SIROLIMUS
     Dosage: UNK, 2X/DAY, 0.9
     Dates: start: 201509
  2. RAPAMUNE [Suspect]
     Active Substance: SIROLIMUS
     Dosage: UNK, 2X/DAY, 1.5

REACTIONS (2)
  - Product quality issue [Unknown]
  - Laboratory test abnormal [Unknown]
